FAERS Safety Report 20802588 (Version 1)
Quarter: 2022Q2

REPORT INFORMATION
  Report Type: Spontaneous
  Country: US (occurrence: None)
  Receive Date: 20220509
  Receipt Date: 20220509
  Transmission Date: 20220721
  Serious: Yes (unspecified)
  Sender: FDA-Public Use
  Company Number: None

PATIENT
  Age: 45 Year
  Sex: Male
  Weight: 93 kg

DRUGS (3)
  1. ENTYVIO [Suspect]
     Active Substance: VEDOLIZUMAB
     Indication: Crohn^s disease
     Dosage: FREQUENCY : ONCE;?
     Route: 011
     Dates: start: 20220506, end: 20220506
  2. Diphenhydramine 25 mg IVP [Concomitant]
     Dates: start: 20220506, end: 20220506
  3. Methylprednisolone 40 mg [Concomitant]
     Dates: start: 20220506, end: 20220506

REACTIONS (4)
  - Dyspnoea [None]
  - Hyperhidrosis [None]
  - Urinary incontinence [None]
  - Visual impairment [None]

NARRATIVE: CASE EVENT DATE: 20220506
